FAERS Safety Report 10223180 (Version 1)
Quarter: 2014Q2

REPORT INFORMATION
  Report Type: Spontaneous
  Country: US (occurrence: None)
  Receive Date: 20140606
  Receipt Date: 20140606
  Transmission Date: 20141212
  Serious: Yes (Hospitalization)
  Sender: FDA-Public Use
  Company Number: None

PATIENT
  Age: 1 Month
  Sex: Female

DRUGS (6)
  1. CYCLOMYDRIL [Suspect]
     Indication: INVESTIGATION
     Dosage: Q 5 MIN X 3 DROPS
     Route: 047
     Dates: start: 20130306, end: 20130306
  2. CYCLOMYDRIL [Suspect]
     Indication: RETINOPATHY OF PREMATURITY
     Dosage: Q 5 MIN X 3 DROPS
     Route: 047
     Dates: start: 20130306, end: 20130306
  3. TETRACAINE [Suspect]
     Indication: INVESTIGATION
     Dosage: TO BOTH EYES
     Route: 047
     Dates: start: 20130306, end: 20130306
  4. TETRACAINE [Suspect]
     Indication: RETINOPATHY OF PREMATURITY
     Dosage: TO BOTH EYES
     Route: 047
     Dates: start: 20130306, end: 20130306
  5. ELEMENTAL IRON [Concomitant]
  6. MULTIVITAMIN (POLYVISOL) [Concomitant]

REACTIONS (3)
  - Apnoea [None]
  - Neonatal hypoxia [None]
  - Apnoea neonatal [None]
